FAERS Safety Report 13454442 (Version 6)
Quarter: 2018Q1

REPORT INFORMATION
  Report Type: Report from Study
  Country: US (occurrence: US)
  Receive Date: 20170418
  Receipt Date: 20180123
  Transmission Date: 20180508
  Serious: Yes (Other)
  Sender: FDA-Public Use
  Company Number: US-JAZZ-2017-US-003454

PATIENT
  Sex: Female

DRUGS (72)
  1. ASCORBIC ACID. [Concomitant]
     Active Substance: ASCORBIC ACID
  2. FLAXSEED [Concomitant]
     Active Substance: FLAX SEED
  3. BIOTIN [Concomitant]
     Active Substance: BIOTIN
  4. LORATADINE. [Concomitant]
     Active Substance: LORATADINE
  5. NALTREXON [Concomitant]
     Active Substance: NALTREXONE
  6. DIHYDROERGOTAMINE [Concomitant]
     Active Substance: DIHYDROERGOTAMINE
  7. OLIVE LEAF EXTRACT [Concomitant]
  8. FEXOFENADINE HCL [Concomitant]
     Active Substance: FEXOFENADINE HYDROCHLORIDE
  9. NADOLOL. [Concomitant]
     Active Substance: NADOLOL
  10. YUCCA ROOT [Concomitant]
  11. MILK THISTLE                       /01131701/ [Concomitant]
  12. DEXAMETHASONE. [Concomitant]
     Active Substance: DEXAMETHASONE
  13. METHYLCOBALAMIN. [Concomitant]
     Active Substance: METHYLCOBALAMIN
  14. XYREM [Suspect]
     Active Substance: SODIUM OXYBATE
     Indication: NARCOLEPSY
     Dosage: 2.25 G, BID
     Route: 048
     Dates: start: 201007, end: 201007
  15. FLONASE [Suspect]
     Active Substance: FLUTICASONE PROPIONATE
     Dosage: UNK, QD
  16. ALLERGY                            /00000402/ [Concomitant]
  17. CHLORZOXAZONE. [Concomitant]
     Active Substance: CHLORZOXAZONE
  18. CROMOLYN SODIUM. [Concomitant]
     Active Substance: CROMOLYN SODIUM
  19. MIGRANAL [Concomitant]
     Active Substance: DIHYDROERGOTAMINE MESYLATE
  20. 5-HTP                              /00439301/ [Concomitant]
     Active Substance: OXITRIPTAN
  21. GLUTATHIONE [Concomitant]
     Active Substance: GLUTATHIONE
  22. NALTREXONE [Concomitant]
     Active Substance: NALTREXONE
  23. RHODIOLA                           /02220301/ [Concomitant]
  24. SALT [Concomitant]
     Active Substance: SODIUM CHLORIDE
  25. FISH OIL [Concomitant]
     Active Substance: FISH OIL
  26. GLUCOSAMINE [Concomitant]
     Active Substance: GLUCOSAMINE
  27. THEANINE [Concomitant]
     Active Substance: THEANINE
  28. VIVELLE [Concomitant]
     Active Substance: ESTRADIOL
  29. XYREM [Suspect]
     Active Substance: SODIUM OXYBATE
     Dosage: 3.5 G, BID
     Route: 048
     Dates: start: 201105
  30. L THEANINE [Concomitant]
  31. LYRICA [Concomitant]
     Active Substance: PREGABALIN
  32. HYDROCORTISONE. [Concomitant]
     Active Substance: HYDROCORTISONE
  33. ACIDOPHILIS [Concomitant]
     Active Substance: LACTOBACILLUS ACIDOPHILUS
  34. XYREM [Suspect]
     Active Substance: SODIUM OXYBATE
     Indication: CATAPLEXY
     Dosage: DOSE ADJUSTMENT
     Route: 048
     Dates: start: 201007, end: 201105
  35. CETIRIZINE HCL [Concomitant]
     Active Substance: CETIRIZINE HYDROCHLORIDE
  36. CIMETIDINE [Concomitant]
     Active Substance: CIMETIDINE
  37. L-METHIONINE [Concomitant]
  38. AZITHROMYCIN ANHYDROUS. [Concomitant]
     Active Substance: AZITHROMYCIN ANHYDROUS
  39. VERAPAMIL [Concomitant]
     Active Substance: VERAPAMIL HYDROCHLORIDE
  40. L-LYSINE HCL [Concomitant]
  41. PHENYLALANINE [Concomitant]
     Active Substance: PHENYLALANINE
  42. TURMERIC                           /01079601/ [Concomitant]
     Active Substance: HERBALS\TURMERIC
  43. FLONASE [Suspect]
     Active Substance: FLUTICASONE PROPIONATE
     Indication: PRODUCT USED FOR UNKNOWN INDICATION
     Dosage: UNK, PRN
     Dates: start: 20140912
  44. COQ 10 [Concomitant]
     Active Substance: UBIDECARENONE
  45. VITAMIN D3 [Concomitant]
     Active Substance: CHOLECALCIFEROL
  46. ALLERGAN [Concomitant]
     Active Substance: PAPAIN
  47. ALPHA LIPOIC ACID [Concomitant]
     Active Substance: .ALPHA.-LIPOIC ACID
  48. CALCIUM CARBASPIRIN [Concomitant]
  49. CURCUMIN [Concomitant]
     Active Substance: CURCUMIN
  50. GUAIFENESIN. [Concomitant]
     Active Substance: GUAIFENESIN
  51. QUERCETIN DIHYDRATE [Concomitant]
  52. VITAMIN B6 [Concomitant]
     Active Substance: PYRIDOXINE HYDROCHLORIDE
  53. KETOCONAZOLE. [Concomitant]
     Active Substance: KETOCONAZOLE
  54. GASTROCROM [Concomitant]
     Active Substance: CROMOLYN SODIUM
  55. MAGNEBIND [Concomitant]
  56. CREATINE [Suspect]
     Active Substance: CREATINE
     Indication: PRODUCT USED FOR UNKNOWN INDICATION
     Dosage: UNK
  57. DIGESTIVE ENZYME [Concomitant]
     Active Substance: UNSPECIFIED INGREDIENT
  58. MAGNESIUM GLUCEPTATE [Concomitant]
     Active Substance: MAGNESIUM GLUCEPTATE
  59. MOLYBDENUM [Concomitant]
     Active Substance: MOLYBDENUM
  60. SLIPPERY ELM [Concomitant]
     Active Substance: ELM
  61. MINOCYCLINE [Concomitant]
     Active Substance: MINOCYCLINE\MINOCYCLINE HYDROCHLORIDE
  62. DILTIAZEM. [Concomitant]
     Active Substance: DILTIAZEM
  63. ORPHENADRINE [Suspect]
     Active Substance: ORPHENADRINE
     Indication: PRODUCT USED FOR UNKNOWN INDICATION
  64. BOSWELLIA SERRATA [Concomitant]
  65. EPIPEN JR [Concomitant]
     Active Substance: EPINEPHRINE
  66. PROGESTERONE. [Concomitant]
     Active Substance: PROGESTERONE
  67. SUMATRIPTAN SUCCINATE. [Concomitant]
     Active Substance: SUMATRIPTAN SUCCINATE
  68. TAURINE [Concomitant]
     Active Substance: TAURINE
  69. VITAMIN B12 [Concomitant]
     Active Substance: CYANOCOBALAMIN
  70. ACAI                               /06686501/ [Concomitant]
  71. AMITRIPTYLINE HCL [Concomitant]
     Active Substance: AMITRIPTYLINE
  72. ONDANSETRON ODT DRLA [Concomitant]
     Active Substance: ONDANSETRON

REACTIONS (18)
  - Dizziness [Not Recovered/Not Resolved]
  - Stress [Not Recovered/Not Resolved]
  - Oropharyngeal pain [Unknown]
  - Nausea [Not Recovered/Not Resolved]
  - Hysterectomy [Unknown]
  - Drug ineffective [Unknown]
  - Pain [Unknown]
  - Malaise [Not Recovered/Not Resolved]
  - Memory impairment [Unknown]
  - Decreased appetite [Not Recovered/Not Resolved]
  - Tremor [Recovering/Resolving]
  - Dry mouth [Unknown]
  - Therapeutic response unexpected [Unknown]
  - Blindness transient [Recovering/Resolving]
  - Anxiety [Recovering/Resolving]
  - Pre-existing condition improved [Unknown]
  - Hypotension [Recovering/Resolving]
  - Fatigue [Not Recovered/Not Resolved]

NARRATIVE: CASE EVENT DATE: 2012
